FAERS Safety Report 10060364 (Version 2)
Quarter: 2014Q2

REPORT INFORMATION
  Report Type: Spontaneous
  Country: US (occurrence: US)
  Receive Date: 20140404
  Receipt Date: 20140411
  Transmission Date: 20141212
  Serious: Yes (Life-Threatening, Other)
  Sender: FDA-Public Use
  Company Number: US-BAXTER-2014BAX016288

PATIENT
  Age: 0 Day
  Sex: Male

DRUGS (1)
  1. GAMMAGARD LIQUID [Suspect]
     Indication: PRODUCT USED FOR UNKNOWN INDICATION
     Route: 065

REACTIONS (7)
  - Umbilical cord abnormality [Recovered/Resolved]
  - Premature baby [Recovered/Resolved]
  - Cerebral haemorrhage [Recovered/Resolved with Sequelae]
  - Cerebral palsy [Not Recovered/Not Resolved]
  - Brain injury [Not Recovered/Not Resolved]
  - Cardiac murmur [Unknown]
  - Paternal drugs affecting foetus [Unknown]
